FAERS Safety Report 17524375 (Version 1)
Quarter: 2020Q1

REPORT INFORMATION
  Report Type: Spontaneous
  Country: LV (occurrence: LV)
  Receive Date: 20200310
  Receipt Date: 20200310
  Transmission Date: 20200409
  Serious: Yes (Hospitalization)
  Sender: FDA-Public Use
  Company Number: LV-JNJFOC-20200302811

PATIENT
  Sex: Male

DRUGS (7)
  1. RIVAROXABAN [Suspect]
     Active Substance: RIVAROXABAN
     Indication: CEREBROVASCULAR ACCIDENT PROPHYLAXIS
     Dosage: 15 MG
     Route: 048
     Dates: start: 20181113, end: 20200116
  2. RIVAROXABAN [Suspect]
     Active Substance: RIVAROXABAN
     Indication: ATRIAL FIBRILLATION
  3. TORASEMIDE [Concomitant]
     Active Substance: TORSEMIDE
     Dosage: 50 MG
  4. ATORIS [Concomitant]
     Active Substance: ATORVASTATIN CALCIUM
     Dosage: 20 MG
  5. SPIRIX [Concomitant]
     Active Substance: SPIRONOLACTONE
     Dosage: 25 MG
  6. FUROSEMID [FUROSEMIDE] [Concomitant]
     Active Substance: FUROSEMIDE
     Dosage: 80 MG
  7. BETAX [Concomitant]
     Dosage: 10 MG

REACTIONS (9)
  - Yellow skin [Unknown]
  - Hydrothorax [Unknown]
  - Cardiac asthma [Unknown]
  - Dyspnoea [Unknown]
  - Pneumonia [Unknown]
  - Cardiac failure chronic [Unknown]
  - Hypoalbuminaemia [Unknown]
  - Chronic hepatitis C [Unknown]
  - Jaundice [Unknown]

NARRATIVE: CASE EVENT DATE: 20200116
